FAERS Safety Report 11373780 (Version 2)
Quarter: 2015Q3

REPORT INFORMATION
  Report Type: Spontaneous
  Country: US (occurrence: None)
  Receive Date: 20150811
  Receipt Date: 20150824
  Transmission Date: 20151125
  Serious: Yes (Hospitalization, Other)
  Sender: FDA-Public Use
  Company Number: 2015SMT00233

PATIENT
  Age: 63 Year
  Sex: Male

DRUGS (1)
  1. REGRANEX [Suspect]
     Active Substance: BECAPLERMIN
     Indication: SKIN ULCER
     Dosage: 1X/DAY
     Dates: start: 201506, end: 20150706

REACTIONS (7)
  - Application site infection [None]
  - Osteomyelitis [None]
  - Off label use [None]
  - Foot amputation [None]
  - Acinetobacter test positive [None]
  - Staphylococcus test positive [None]
  - Bone erosion [None]

NARRATIVE: CASE EVENT DATE: 201506
